FAERS Safety Report 8832136 (Version 2)
Quarter: 2012Q4

REPORT INFORMATION
  Report Type: Report from Study
  Country: US (occurrence: US)
  Receive Date: 20121009
  Receipt Date: 20121019
  Transmission Date: 20130627
  Serious: Yes (Hospitalization)
  Sender: FDA-Public Use
  Company Number: US-ROCHE-1138069

PATIENT
  Age: 50 Year
  Sex: Female
  Weight: 75 kg

DRUGS (3)
  1. BEVACIZUMAB [Suspect]
     Indication: BREAST CANCER
     Dosage: OF WEEKS 1,3,5,7,9,11,13,15,17
     Route: 042
     Dates: start: 20120822
  2. PACLITAXEL [Suspect]
     Indication: BREAST CANCER
     Route: 042
     Dates: start: 20120822
  3. CARBOPLATIN [Suspect]
     Indication: BREAST CANCER
     Dosage: AUC 6
     Route: 042
     Dates: start: 20120822

REACTIONS (5)
  - Renal failure acute [Recovering/Resolving]
  - Muscular weakness [Recovering/Resolving]
  - Dehydration [Recovering/Resolving]
  - Hypokalaemia [Recovering/Resolving]
  - Hyponatraemia [Recovering/Resolving]
